FAERS Safety Report 25850100 (Version 2)
Quarter: 2025Q4

REPORT INFORMATION
  Report Type: Spontaneous
  Country: CA (occurrence: CA)
  Receive Date: 20250926
  Receipt Date: 20251004
  Transmission Date: 20260117
  Serious: No
  Sender: CELLTRION
  Company Number: CA-CELLTRION INC.-2025CA034084

PATIENT

DRUGS (2)
  1. INFLIXIMAB [Suspect]
     Active Substance: INFLIXIMAB
     Indication: Colitis ulcerative
     Dosage: MAINTENANCE - 120 MG -  SC (SUBCUTANEOUS) EVERY 2 WEEKS
     Route: 058
     Dates: start: 20250206
  2. PREDNISONE [Concomitant]
     Active Substance: PREDNISONE
     Indication: Product used for unknown indication
     Route: 065

REACTIONS (3)
  - Haemorrhage [Unknown]
  - Anal incontinence [Unknown]
  - Diarrhoea [Unknown]

NARRATIVE: CASE EVENT DATE: 20250101
